FAERS Safety Report 7652380-1 (Version None)
Quarter: 2011Q3

REPORT INFORMATION
  Report Type: 
  Country: None (occurrence: None)
  Receive Date: 20110803
  Receipt Date: 20110728
  Transmission Date: 20111222
  Serious: No
  Sender: FDA-Public Use
  Company Number: GB-B.I. PHARMACEUTICALS,INC./RIDGEFIELD-2010-UK-00839UK

PATIENT
  Sex: Female
  Weight: 53.6 kg

DRUGS (9)
  1. OXYCONTIN [Concomitant]
     Indication: POSTOPERATIVE ANALGESIA
     Dosage: 30 MG
     Route: 048
     Dates: start: 20100728, end: 20100802
  2. DOXYCYCLINE [Concomitant]
     Indication: POST PROCEDURAL HAEMATOMA
     Dosage: 100 MG
     Route: 048
     Dates: start: 20100729, end: 20100801
  3. AMOXICILLIN AND CLAVULANATE POTASSIUM [Concomitant]
     Indication: POST PROCEDURAL HAEMATOMA
     Dosage: 1250 NR
     Route: 015
     Dates: start: 20100728, end: 20100802
  4. DABIGATRAN [Suspect]
     Indication: THROMBOSIS PROPHYLAXIS
     Dosage: 110 MG
     Route: 048
     Dates: start: 20100726, end: 20100726
  5. VANCOMYCIN [Concomitant]
     Indication: PROPHYLACTIC CHEMOTHERAPY
     Dosage: 2 G
     Route: 042
     Dates: start: 20100726, end: 20100728
  6. CEFTAZIDIME [Concomitant]
     Indication: PROPHYLACTIC CHEMOTHERAPY
     Dosage: 3 G
     Route: 042
     Dates: start: 20100726, end: 20100728
  7. FOLIC ACID [Concomitant]
     Indication: SICKLE CELL ANAEMIA
     Dosage: 5 MG
     Route: 048
     Dates: start: 20100726, end: 20100802
  8. PENICILLIN V [Concomitant]
     Indication: INFECTION PROPHYLAXIS
     Dosage: 500 MG
     Route: 048
     Dates: start: 20100726, end: 20100802
  9. ACETAMINOPHEN [Concomitant]
     Indication: POSTOPERATIVE ANALGESIA
     Dosage: 4 G
     Route: 048
     Dates: start: 20100725, end: 20100802

REACTIONS (2)
  - DRUG ADMINISTRATION ERROR [None]
  - DRUG PRESCRIBING ERROR [None]
